FAERS Safety Report 23009834 (Version 2)
Quarter: 2023Q4

REPORT INFORMATION
  Report Type: Spontaneous
  Country: JP (occurrence: JP)
  Receive Date: 20230929
  Receipt Date: 20231023
  Transmission Date: 20240110
  Serious: Yes (Other)
  Sender: FDA-Public Use
  Company Number: JP-JNJFOC-20230968912

PATIENT
  Sex: Male

DRUGS (6)
  1. RISPERIDONE [Suspect]
     Active Substance: RISPERIDONE
     Indication: Autism spectrum disorder
     Dosage: DOSE UNKNOWN
     Route: 048
     Dates: start: 202010, end: 202012
  2. RISPERIDONE [Suspect]
     Active Substance: RISPERIDONE
     Dosage: DOSE UNKNOWN
     Route: 048
     Dates: start: 202107
  3. METHYLPHENIDATE HYDROCHLORIDE [Concomitant]
     Active Substance: METHYLPHENIDATE HYDROCHLORIDE
     Indication: Attention deficit hyperactivity disorder
     Dosage: DOSE UNKNOWN
     Route: 048
     Dates: start: 202212
  4. STRATTERA [Concomitant]
     Active Substance: ATOMOXETINE HYDROCHLORIDE
     Indication: Attention deficit hyperactivity disorder
     Dosage: DOSE UNKNOWN
     Route: 048
     Dates: start: 202301, end: 2023
  5. INTUNIV [Concomitant]
     Active Substance: GUANFACINE HYDROCHLORIDE
     Indication: Attention deficit hyperactivity disorder
     Dosage: DOSE UNKNOWN
     Route: 048
     Dates: start: 202302, end: 2023
  6. INTUNIV [Concomitant]
     Active Substance: GUANFACINE HYDROCHLORIDE
     Indication: Attention deficit hyperactivity disorder
     Dosage: DOSE UNKNOWN
     Route: 048
     Dates: start: 2023

REACTIONS (6)
  - Intentional self-injury [Recovering/Resolving]
  - Decreased appetite [Recovering/Resolving]
  - Panic reaction [Recovering/Resolving]
  - Aggression [Recovering/Resolving]
  - Therapeutic product effect incomplete [Unknown]
  - Off label use [Unknown]

NARRATIVE: CASE EVENT DATE: 20200101
